FAERS Safety Report 9100020 (Version 1)
Quarter: 2013Q1

REPORT INFORMATION
  Report Type: Spontaneous
  Country: US (occurrence: US)
  Receive Date: 20130214
  Receipt Date: 20130214
  Transmission Date: 20140127
  Serious: Yes (Hospitalization)
  Sender: FDA-Public Use
  Company Number: US-B.I. PHARMACEUTICALS,INC./RIDGEFIELD-2013-BI-03690BP

PATIENT
  Sex: Male
  Weight: 79 kg

DRUGS (1)
  1. PRADAXA [Suspect]
     Route: 048
     Dates: start: 201211

REACTIONS (2)
  - Cerebrovascular accident [Recovered/Resolved with Sequelae]
  - Memory impairment [Not Recovered/Not Resolved]
